FAERS Safety Report 19950432 (Version 1)
Quarter: 2021Q4

REPORT INFORMATION
  Report Type: Spontaneous
  Country: US (occurrence: US)
  Receive Date: 20211013
  Receipt Date: 20211013
  Transmission Date: 20220303
  Serious: No
  Sender: FDA-Public Use
  Company Number: US-SA-2019SA099330

PATIENT
  Age: 66 Year
  Sex: Female

DRUGS (3)
  1. DUPIXENT [Suspect]
     Active Substance: DUPILUMAB
     Indication: Eczema
     Dosage: 600 MG, 1X
     Route: 058
     Dates: start: 201803, end: 201803
  2. DUPIXENT [Suspect]
     Active Substance: DUPILUMAB
     Indication: Dermatitis atopic
     Dosage: 300 MG, QOW
     Route: 058
     Dates: start: 2018
  3. DUPIXENT [Suspect]
     Active Substance: DUPILUMAB
     Indication: Asthma
     Dosage: 300 MG, QOW
     Route: 058
     Dates: start: 20180522

REACTIONS (13)
  - Upper respiratory tract infection [Unknown]
  - Ocular hyperaemia [Unknown]
  - Blood pressure decreased [Unknown]
  - Hypotension [Unknown]
  - Dizziness [Unknown]
  - Eye irritation [Recovered/Resolved]
  - Eye pruritus [Unknown]
  - Rash [Unknown]
  - Oral herpes [Unknown]
  - Dry eye [Unknown]
  - Unevaluable event [Unknown]
  - Product storage error [Unknown]
  - Therapeutic response unexpected [Unknown]

NARRATIVE: CASE EVENT DATE: 20190101
